FAERS Safety Report 17521499 (Version 5)
Quarter: 2021Q4

REPORT INFORMATION
  Report Type: Report from Study
  Country: CA (occurrence: CA)
  Receive Date: 20200310
  Receipt Date: 20211020
  Transmission Date: 20220303
  Serious: Yes (Other)
  Sender: FDA-Public Use
  Company Number: CA-JNJFOC-20200119875

PATIENT
  Age: 9 Year
  Sex: Male
  Weight: 32.3 kg

DRUGS (6)
  1. REMICADE [Suspect]
     Active Substance: INFLIXIMAB
     Indication: Colitis ulcerative
     Dosage: MEDICAL ORDER CHANGE, REMICADE DOSE INCREASED TO 400MG
     Route: 042
     Dates: start: 20191028
  2. REMICADE [Suspect]
     Active Substance: INFLIXIMAB
     Route: 042
  3. REMICADE [Suspect]
     Active Substance: INFLIXIMAB
     Route: 042
  4. REMICADE [Suspect]
     Active Substance: INFLIXIMAB
     Route: 042
  5. REMICADE [Suspect]
     Active Substance: INFLIXIMAB
     Route: 042
  6. REMICADE [Suspect]
     Active Substance: INFLIXIMAB
     Route: 042

REACTIONS (4)
  - Colitis ulcerative [Unknown]
  - Therapeutic product effect decreased [Unknown]
  - Product use issue [Unknown]
  - Off label use [Unknown]
